FAERS Safety Report 16726882 (Version 2)
Quarter: 2019Q3

REPORT INFORMATION
  Report Type: Spontaneous
  Country: JP (occurrence: JP)
  Receive Date: 20190821
  Receipt Date: 20190913
  Transmission Date: 20191005
  Serious: Yes (Death, Life-Threatening, Other)
  Sender: FDA-Public Use
  Company Number: JP-VIFOR (INTERNATIONAL) INC.-VIT-2019-05317

PATIENT
  Age: 71 Year
  Sex: Male

DRUGS (6)
  1. DENOSUMAB [Concomitant]
     Active Substance: DENOSUMAB
     Route: 065
  2. NIVOLUMAB [Concomitant]
     Active Substance: NIVOLUMAB
     Indication: SQUAMOUS CELL CARCINOMA OF LUNG
     Dosage: ON DAY 1 FOR 2 WEEK CYCLE
     Route: 065
     Dates: start: 20160629, end: 20170308
  3. NIVOLUMAB [Suspect]
     Active Substance: NIVOLUMAB
     Dates: start: 20190410
  4. MIRCERA [Suspect]
     Active Substance: METHOXY POLYETHYLENE GLYCOL-EPOETIN BETA
     Indication: NEPHROGENIC ANAEMIA
     Route: 058
  5. MIRCERA [Suspect]
     Active Substance: METHOXY POLYETHYLENE GLYCOL-EPOETIN BETA
     Route: 058
     Dates: start: 20190510
  6. NIVOLUMAB [Suspect]
     Active Substance: NIVOLUMAB
     Indication: PRODUCT USED FOR UNKNOWN INDICATION
     Dates: start: 20190213

REACTIONS (16)
  - Pyelocaliectasis [Unknown]
  - Ureteric dilatation [Unknown]
  - Inflammation [Not Recovered/Not Resolved]
  - Pyrexia [Unknown]
  - Pelvi-ureteric obstruction [Unknown]
  - Essential tremor [Recovered/Resolved]
  - Urinary tract infection [Unknown]
  - Muscular weakness [Unknown]
  - Aplasia pure red cell [Not Recovered/Not Resolved]
  - Haemoglobin decreased [Unknown]
  - Metastases to kidney [Unknown]
  - Rash [Recovering/Resolving]
  - Metastases to bone [Unknown]
  - Dyspnoea [Unknown]
  - Anaemia [Fatal]
  - Myositis [Unknown]

NARRATIVE: CASE EVENT DATE: 20180727
